FAERS Safety Report 24332979 (Version 1)
Quarter: 2024Q3

REPORT INFORMATION
  Report Type: Spontaneous
  Country: US (occurrence: US)
  Receive Date: 20240918
  Receipt Date: 20240918
  Transmission Date: 20241016
  Serious: No
  Sender: TORRENT
  Company Number: US-TORRENT-00013746

PATIENT
  Sex: Female

DRUGS (1)
  1. TRAZODONE [Suspect]
     Active Substance: TRAZODONE HYDROCHLORIDE
     Indication: Product used for unknown indication
     Dosage: 4 TO 5 WEEKS
     Route: 065
     Dates: start: 20230503

REACTIONS (1)
  - Adverse drug reaction [Unknown]
